FAERS Safety Report 8132480-2 (Version None)
Quarter: 2012Q1

REPORT INFORMATION
  Report Type: 
  Country: None (occurrence: None)
  Receive Date: 20120103
  Receipt Date: 20110917
  Transmission Date: 20120608
  Serious: No
  Sender: FDA-Public Use
  Company Number: AE-2011-001646

PATIENT
  Age: 47 Year
  Sex: Female

DRUGS (5)
  1. INCIVEK [Suspect]
     Dosage: 2250 MG (750 MG,3 IN 1 D),ORAL
     Route: 048
     Dates: start: 20110802
  2. PEGINTERFERON (PEGINTERFERON ALFA-2A) [Concomitant]
  3. RIBAVIRIN [Concomitant]
  4. IBUPROEFN (IBUPROFEN) [Concomitant]
  5. ACETAMINOPHEN [Concomitant]

REACTIONS (9)
  - DYSPNOEA [None]
  - PYREXIA [None]
  - PRURITUS [None]
  - DIZZINESS [None]
  - FALL [None]
  - FEELING ABNORMAL [None]
  - SINUSITIS [None]
  - WHITE BLOOD CELL COUNT DECREASED [None]
  - RASH [None]
